FAERS Safety Report 11306350 (Version 1)
Quarter: 2015Q3

REPORT INFORMATION
  Report Type: Spontaneous
  Country: US (occurrence: US)
  Receive Date: 20150723
  Receipt Date: 20150723
  Transmission Date: 20151125
  Serious: No
  Sender: FDA-Public Use
  Company Number: US-GLAXOSMITHKLINE-US2015103021

PATIENT
  Age: 68 Year
  Sex: Female

DRUGS (1)
  1. TARGET NICOTINE [Suspect]
     Active Substance: NICOTINE
     Indication: SMOKING CESSATION THERAPY
     Dosage: UNK

REACTIONS (4)
  - Tooth deposit [Not Recovered/Not Resolved]
  - Coating in mouth [Not Recovered/Not Resolved]
  - Tongue coated [Not Recovered/Not Resolved]
  - Nicotine dependence [Not Recovered/Not Resolved]
